FAERS Safety Report 12564022 (Version 1)
Quarter: 2016Q3

REPORT INFORMATION
  Report Type: Spontaneous
  Country: US (occurrence: None)
  Receive Date: 20160715
  Receipt Date: 20160715
  Transmission Date: 20161109
  Serious: Yes (Hospitalization)
  Sender: FDA-Public Use
  Company Number: None

PATIENT
  Age: 24 Year
  Sex: Female
  Weight: 52.16 kg

DRUGS (5)
  1. TRINESSA [Concomitant]
     Active Substance: ETHINYL ESTRADIOL\NORGESTIMATE
  2. ZOLOFT [Concomitant]
     Active Substance: SERTRALINE HYDROCHLORIDE
  3. MELATONIN [Concomitant]
     Active Substance: MELATONIN
  4. FISH OIL [Concomitant]
     Active Substance: FISH OIL
  5. RIZATRIPTAN, 10 MG [Suspect]
     Active Substance: RIZATRIPTAN
     Indication: MIGRAINE
     Route: 048
     Dates: start: 20160711, end: 20160711

REACTIONS (12)
  - Heart rate increased [None]
  - Muscle tightness [None]
  - Feeling jittery [None]
  - Panic attack [None]
  - Tremor [None]
  - Crying [None]
  - Alcoholism [None]
  - Coordination abnormal [None]
  - Blood pressure increased [None]
  - Alcohol abuse [None]
  - Anxiety [None]
  - Pruritus [None]

NARRATIVE: CASE EVENT DATE: 20160711
